FAERS Safety Report 5092026-2 (Version None)
Quarter: 2006Q3

REPORT INFORMATION
  Report Type: 
  Country: None (occurrence: None)
  Receive Date: 20060825
  Receipt Date: 20060814
  Transmission Date: 20061208
  Serious: Yes (Other)
  Sender: FDA-Public Use
  Company Number: 2006099883

PATIENT
  Age: 70 Year
  Sex: Male

DRUGS (6)
  1. ALPRAZOLAM [Suspect]
     Indication: ANXIETY
     Dosage: 0.25 MG (0.25 MG, 1 IN 1 D), ORAL
     Route: 048
     Dates: start: 20020101
  2. ALPRAZOLAM [Suspect]
     Indication: DEPRESSION
     Dosage: 0.25 MG (0.25 MG, 1 IN 1 D), ORAL
     Route: 048
     Dates: start: 20020101
  3. CEPHALEXIN [Suspect]
     Indication: PHARYNGITIS
  4. AMOXICILLIN [Suspect]
     Indication: PHARYNGITIS
  5. DICLOFENAC SODIUM [Suspect]
     Indication: PHARYNGITIS
  6. PAROXETINE HCL [Concomitant]

REACTIONS (10)
  - DRUG INEFFECTIVE [None]
  - DRY EYE [None]
  - EYE IRRITATION [None]
  - FLATULENCE [None]
  - GASTRITIS [None]
  - HELICOBACTER INFECTION [None]
  - HYPERTENSION [None]
  - OESOPHAGEAL PAIN [None]
  - PHARYNGOLARYNGEAL PAIN [None]
  - THYROID CYST [None]
